FAERS Safety Report 10378099 (Version 1)
Quarter: 2014Q1

REPORT INFORMATION
  Report Type: Spontaneous
  Country: US (occurrence: None)
  Receive Date: 20140306
  Receipt Date: 20140306
  Transmission Date: 20141002
  Serious: Yes (Hospitalization)
  Sender: FDA-Public Use
  Company Number: 163-21880-13013670

PATIENT
  Age: 87 Year
  Sex: Female
  Weight: 58.06 kg

DRUGS (10)
  1. REVLIMID (LENALIDOMIDE) (15 MILLIGRAM, CAPSULES) [Suspect]
     Indication: PLASMA CELL MYELOMA
     Route: 048
     Dates: start: 20101118
  2. CENTRUM SILVER (CENTRUM SILVER) (UNKNOWN) [Concomitant]
  3. DEXAMETHASONE (DEXAMETHASONE) (UNKNOWN) [Concomitant]
  4. FLUDROCORTISONE (FLUDROCORTISONE) (UNKNOWN) [Concomitant]
  5. GABAPENTIN (GABAPENTIN) (UNKNOWN) (GABAPENTIN) [Concomitant]
  6. PRESERVISION AREDS (VITEYES) (UNKNOWN) [Concomitant]
  7. QVAR (BECLOMETASONE DIPROPIONATE) (AEROSOL FOR INHALATION) [Concomitant]
  8. VITAMIN D (ERGOCALCIFEROL) (UNKNOWN) [Concomitant]
  9. ZOCOR (SIMVASTATIN) (TABLETS) [Concomitant]
  10. ZOLOFT (SERTRALINE HYDROCHLORIDE) (TABLETS) [Concomitant]

REACTIONS (4)
  - Cardiac enzymes increased [None]
  - Dizziness [None]
  - Asthenia [None]
  - Dehydration [None]
